FAERS Safety Report 5404962-5 (Version None)
Quarter: 2007Q3

REPORT INFORMATION
  Report Type: 
  Country: None (occurrence: None)
  Receive Date: 20070803
  Receipt Date: 20070613
  Transmission Date: 20080115
  Serious: Yes (Other)
  Sender: FDA-Public Use
  Company Number: US-PURDUE-USA_2007_0028033

PATIENT
  Sex: Male
  Weight: 104 kg

DRUGS (4)
  1. OXYCONTIN [Suspect]
     Indication: PAIN
     Dosage: 40 MG, SEE TEXT
     Dates: start: 19970101, end: 20030101
  2. ANTIHYPERTENSIVES [Concomitant]
     Indication: HYPERTENSION
  3. DRUG USED IN DIABETES [Concomitant]
  4. HYPNOTICS AND SEDATIVES [Concomitant]

REACTIONS (2)
  - CEREBROVASCULAR ACCIDENT [None]
  - DRUG DEPENDENCE [None]
